FAERS Safety Report 10171503 (Version 3)
Quarter: 2014Q2

REPORT INFORMATION
  Report Type: Report from Study
  Country: JP (occurrence: JP)
  Receive Date: 20140514
  Receipt Date: 20140609
  Transmission Date: 20141212
  Serious: Yes (Hospitalization)
  Sender: FDA-Public Use
  Company Number: JP-EISAI INC-E3810-07089-CLI-JP

PATIENT
  Age: 74 Year
  Sex: Female
  Weight: 53 kg

DRUGS (12)
  1. E3810 (RABEPRAZOLE) [Suspect]
     Indication: GASTROOESOPHAGEAL REFLUX DISEASE
     Route: 048
     Dates: start: 20140502, end: 20140509
  2. E3810 (RABEPRAZOLE) [Suspect]
     Route: 048
     Dates: start: 20140516, end: 20140516
  3. E3810 (RABEPRAZOLE) [Suspect]
     Route: 048
     Dates: start: 20140517, end: 20140523
  4. AMLODIPINE [Concomitant]
  5. MICOMBI [Concomitant]
  6. CLENBUTEROL [Concomitant]
  7. FENOFIBRATE [Concomitant]
  8. RALOXIFENE [Concomitant]
  9. SERTRALINE [Concomitant]
  10. SENNOSIDE [Concomitant]
  11. DOXAZOSIN [Concomitant]
  12. BROTIZOLAM [Concomitant]

REACTIONS (1)
  - Cholangitis acute [Recovered/Resolved]
